FAERS Safety Report 11990901 (Version 1)
Quarter: 2016Q1

REPORT INFORMATION
  Report Type: Spontaneous
  Country: US (occurrence: US)
  Receive Date: 20160202
  Receipt Date: 20160202
  Transmission Date: 20160526
  Serious: Yes (Hospitalization)
  Sender: FDA-Public Use
  Company Number: US-KOWA-15US001932

PATIENT
  Age: 82 Year
  Sex: Male

DRUGS (11)
  1. LIVALO [Suspect]
     Active Substance: PITAVASTATIN CALCIUM
     Indication: BLOOD CHOLESTEROL INCREASED
     Dosage: 2 MG, QD
     Dates: start: 201509, end: 201509
  2. RANOLAZINE [Concomitant]
     Active Substance: RANOLAZINE
     Indication: CARDIAC DISORDER
     Dosage: 500 MG, BID
  3. XARELTO [Concomitant]
     Active Substance: RIVAROXABAN
     Indication: ANTICOAGULANT THERAPY
     Dosage: 20 MG, QD
  4. CARVEDILOL. [Concomitant]
     Active Substance: CARVEDILOL
     Indication: CARDIAC DISORDER
     Dosage: 3.125 MG, BID
  5. MULTIVITAMIN                       /00097801/ [Concomitant]
     Active Substance: VITAMINS
     Dosage: UNK
  6. TAMSULOSIN [Concomitant]
     Active Substance: TAMSULOSIN
     Indication: PROSTATOMEGALY
     Dosage: 0.4 MG, QD
  7. ISOSORBIDE MONONITRATE. [Concomitant]
     Active Substance: ISOSORBIDE MONONITRATE
     Dosage: 60 MG, QD
  8. PANTOPRAZOLE SODIUM. [Concomitant]
     Active Substance: PANTOPRAZOLE SODIUM
     Dosage: 40 MG, UNK
  9. ALLOPURINOL. [Concomitant]
     Active Substance: ALLOPURINOL
     Indication: GOUT
     Dosage: 100 MG, QD
  10. LIVALO [Suspect]
     Active Substance: PITAVASTATIN CALCIUM
     Dosage: 0.5 DF, UNK
     Dates: start: 201509, end: 201512
  11. NORVASC (GENERIC) [Concomitant]
     Dosage: 0.5 DF, QD

REACTIONS (9)
  - Wrong technique in product usage process [Unknown]
  - Diverticulum [Recovering/Resolving]
  - Terminal insomnia [Recovered/Resolved]
  - Ligament sprain [Recovered/Resolved]
  - Walking aid user [Recovered/Resolved]
  - Swelling [Recovered/Resolved]
  - Rectal haemorrhage [Recovering/Resolving]
  - Polypectomy [Recovering/Resolving]
  - Bronchitis [Recovered/Resolved]

NARRATIVE: CASE EVENT DATE: 201509
